FAERS Safety Report 9632245 (Version 1)
Quarter: 2013Q4

REPORT INFORMATION
  Report Type: Spontaneous
  Country: US (occurrence: None)
  Receive Date: 20131018
  Receipt Date: 20131018
  Transmission Date: 20140711
  Serious: No
  Sender: FDA-Public Use
  Company Number: None

PATIENT
  Age: 71 Year
  Sex: Female

DRUGS (2)
  1. GAMMAGARD [Suspect]
     Indication: HYPOGAMMAGLOBULINAEMIA
     Route: 042
     Dates: end: 20130406
  2. GAMMAGARD [Suspect]
     Indication: CHRONIC LYMPHOCYTIC LEUKAEMIA
     Route: 042
     Dates: end: 20130406

REACTIONS (5)
  - Palpitations [None]
  - Anxiety [None]
  - Tremor [None]
  - Blood pressure increased [None]
  - Heart rate increased [None]
